FAERS Safety Report 8490869-6 (Version None)
Quarter: 2012Q2

REPORT INFORMATION
  Report Type: 
  Country: None (occurrence: None)
  Receive Date: 20120629
  Receipt Date: 20120629
  Transmission Date: 20120825
  Serious: No
  Sender: FDA-Public Use
  Company Number: None

PATIENT
  Sex: Female
  Weight: 49.8957 kg

DRUGS (2)
  1. TIMOLOL MALEATE [Suspect]
     Indication: GLAUCOMA
     Dosage: 0.25% (1X/DAY DROP EYE 1/DAY INTO EYE
     Route: 047
  2. ALPHAGAN P [Suspect]
     Indication: GLAUCOMA
     Dosage: 15% SOL BILID./EYE INTO EYE
     Route: 047

REACTIONS (1)
  - NAIL DISORDER [None]
